FAERS Safety Report 5635865-9 (Version None)
Quarter: 2008Q1

REPORT INFORMATION
  Report Type: 
  Country: None (occurrence: None)
  Receive Date: 20080221
  Receipt Date: 20080211
  Transmission Date: 20080703
  Serious: Yes (Other)
  Sender: FDA-Public Use
  Company Number: 2008EU000147

PATIENT
  Age: 83 Year
  Sex: Female
  Weight: 68 kg

DRUGS (6)
  1. VESICARE [Suspect]
     Indication: HYPERTONIC BLADDER
     Dosage: 5 MG, UID/QD, ORAL
     Route: 048
     Dates: start: 20060303, end: 20080118
  2. BENDROFLUMETHIAZIDE (BENDROFLUMETHIAZIDE) [Concomitant]
  3. CALCIUM W/VITAMINS NOS (CALCIUM, VITAMINS NOS) [Concomitant]
  4. LACTULOSE [Concomitant]
  5. CARDURA [Concomitant]
  6. CODYL [Concomitant]

REACTIONS (1)
  - ATRIAL FIBRILLATION [None]
